FAERS Safety Report 8298515-1 (Version None)
Quarter: 2012Q2

REPORT INFORMATION
  Report Type: 
  Country: None (occurrence: None)
  Receive Date: 20120419
  Receipt Date: 20110504
  Transmission Date: 20120825
  Serious: No
  Sender: FDA-Public Use
  Company Number: US-ABBOTT-11P-163-0723924-00

PATIENT
  Age: 9 Year
  Sex: Female

DRUGS (2)
  1. LUPRON DEPOT [Suspect]
     Indication: PRECOCIOUS PUBERTY
     Dates: start: 20091001, end: 20110201
  2. UNKNOWN SLEEP MEDICATION [Concomitant]
     Indication: INSOMNIA

REACTIONS (3)
  - ABSCESS STERILE [None]
  - GAIT DISTURBANCE [None]
  - PAIN [None]
